FAERS Safety Report 6595305-2 (Version None)
Quarter: 2010Q1

REPORT INFORMATION
  Report Type: 
  Country: None (occurrence: None)
  Receive Date: 20100219
  Receipt Date: 20100219
  Transmission Date: 20100710
  Serious: Yes (Hospitalization)
  Sender: FDA-Public Use
  Company Number: None

PATIENT
  Age: 59 Year
  Sex: Female
  Weight: 77.1115 kg

DRUGS (2)
  1. DIVALPROEX SODIUM [Suspect]
     Indication: EPILEPSY
     Dosage: 500MG TWICE DAILY PO
     Route: 048
     Dates: start: 20100115, end: 20100201
  2. DIVALPROEX SODIUM [Suspect]
     Indication: HEAD INJURY
     Dosage: 500MG TWICE DAILY PO
     Route: 048
     Dates: start: 20100115, end: 20100201

REACTIONS (4)
  - CONVULSION [None]
  - INJURY [None]
  - MALAISE [None]
  - PRODUCT SUBSTITUTION ISSUE [None]
